FAERS Safety Report 19579809 (Version 1)
Quarter: 2021Q3

REPORT INFORMATION
  Report Type: Report from Study
  Country: BE (occurrence: BE)
  Receive Date: 20210719
  Receipt Date: 20210719
  Transmission Date: 20211014
  Serious: Yes (Life-Threatening, Hospitalization)
  Sender: FDA-Public Use
  Company Number: BE-TEVA-2021-BE-1932581

PATIENT
  Age: 79 Year
  Sex: Male
  Weight: 48 kg

DRUGS (7)
  1. 5?FLUOROURACILE [Suspect]
     Active Substance: FLUOROURACIL
     Route: 042
     Dates: start: 20200130
  2. UNI DIAMICRON [Concomitant]
     Active Substance: GLICLAZIDE
     Indication: DIABETES MELLITUS
     Dosage: 60 MILLIGRAM DAILY;
     Route: 048
     Dates: start: 20200304
  3. LEUCOVORIN (FOLINIC ACID) [Suspect]
     Active Substance: LEUCOVORIN
     Dosage: ADMINISTERED ON 04?MAR?2020
     Route: 042
     Dates: start: 20200130
  4. ONIVYDE [Suspect]
     Active Substance: IRINOTECAN HYDROCHLORIDE
     Route: 042
     Dates: start: 20200130
  5. ASAFLOW [Concomitant]
     Active Substance: ASPIRIN
     Indication: HYPERTENSION
     Dosage: 80 MILLIGRAM DAILY;
     Route: 048
     Dates: start: 2016
  6. CREON [Concomitant]
     Active Substance: PANCRELIPASE AMYLASE\PANCRELIPASE LIPASE\PANCRELIPASE PROTEASE
     Indication: STEATORRHOEA
     Dosage: 450 MILLIGRAM DAILY;
     Route: 048
     Dates: start: 201903
  7. BISOPROLOL [Concomitant]
     Active Substance: BISOPROLOL
     Indication: HYPERTENSION
     Dosage: 2.5 MILLIGRAM DAILY;
     Route: 048
     Dates: start: 202002

REACTIONS (1)
  - Hypokalaemia [Recovered/Resolved]
